FAERS Safety Report 13278763 (Version 2)
Quarter: 2017Q3

REPORT INFORMATION
  Report Type: Spontaneous
  Country: CA (occurrence: CA)
  Receive Date: 20170228
  Receipt Date: 20170926
  Transmission Date: 20171127
  Serious: Yes (Other)
  Sender: FDA-Public Use
  Company Number: CA-SA-2017SA029751

PATIENT
  Age: 56 Year
  Sex: Female

DRUGS (4)
  1. ARAVA [Suspect]
     Active Substance: LEFLUNOMIDE
     Indication: RHEUMATOID ARTHRITIS
     Route: 065
  2. ENBREL [Suspect]
     Active Substance: ETANERCEPT
     Indication: RHEUMATOID ARTHRITIS
     Route: 065
  3. METHOTREXATE SODIUM. [Suspect]
     Active Substance: METHOTREXATE SODIUM
     Indication: RHEUMATOID ARTHRITIS
     Route: 065
  4. PREDNISONE. [Suspect]
     Active Substance: PREDNISONE
     Indication: RHEUMATOID ARTHRITIS
     Route: 065

REACTIONS (14)
  - Splenomegaly [Unknown]
  - Drug effect decreased [Unknown]
  - Diabetes mellitus [Unknown]
  - Hypertension [Unknown]
  - Oedema peripheral [Unknown]
  - Joint swelling [Unknown]
  - Malaise [Unknown]
  - Skin discolouration [Unknown]
  - Therapeutic response decreased [Unknown]
  - Joint effusion [Unknown]
  - Thyroid disorder [Unknown]
  - Blood count abnormal [Unknown]
  - Rheumatoid arthritis [Unknown]
  - Arthropathy [Unknown]
